FAERS Safety Report 16684664 (Version 2)
Quarter: 2019Q3

REPORT INFORMATION
  Report Type: Spontaneous
  Country: US (occurrence: US)
  Receive Date: 20190808
  Receipt Date: 20190820
  Transmission Date: 20191004
  Serious: Yes (Death, Hospitalization, Other)
  Sender: FDA-Public Use
  Company Number: US-JNJFOC-20190809491

PATIENT
  Age: 87 Year
  Sex: Female

DRUGS (1)
  1. IMBRUVICA [Suspect]
     Active Substance: IBRUTINIB
     Indication: PRODUCT USED FOR UNKNOWN INDICATION
     Dosage: 420 MG, UNK
     Route: 048
     Dates: start: 201804

REACTIONS (5)
  - Fall [Fatal]
  - Cerebrovascular accident [Fatal]
  - Unresponsive to stimuli [Fatal]
  - Subdural haematoma [Fatal]
  - Rash [Unknown]

NARRATIVE: CASE EVENT DATE: 20190712
